FAERS Safety Report 6160076-0 (Version None)
Quarter: 2009Q2

REPORT INFORMATION
  Report Type: 
  Country: None (occurrence: None)
  Receive Date: 20090420
  Receipt Date: 20090414
  Transmission Date: 20091009
  Serious: Yes (Life-Threatening)
  Sender: FDA-Public Use
  Company Number: DE-ASTRAZENECA-2009AC01053

PATIENT
  Age: 68 Year
  Sex: Female

DRUGS (1)
  1. LIDOCAINE [Suspect]
     Route: 042

REACTIONS (2)
  - CONVULSION [None]
  - OVERDOSE [None]
